FAERS Safety Report 20181117 (Version 1)
Quarter: 2021Q4

REPORT INFORMATION
  Report Type: Spontaneous
  Country: US (occurrence: US)
  Receive Date: 20211214
  Receipt Date: 20211214
  Transmission Date: 20220303
  Serious: Yes (Other)
  Sender: FDA-Public Use
  Company Number: US-STRIDES ARCOLAB LIMITED-2021SP027370

PATIENT
  Age: 60 Year
  Sex: Male

DRUGS (7)
  1. PREDNISOLONE [Suspect]
     Active Substance: PREDNISOLONE
     Indication: Immunosuppressant drug therapy
     Dosage: UNK, EVERY 2 HRS FOR 1 WEEK (PREDNISOLONE)
     Route: 047
  2. PREDNISOLONE [Suspect]
     Active Substance: PREDNISOLONE
     Dosage: UNK (PREDNISONE)
     Route: 048
  3. FOSCARNET [Concomitant]
     Active Substance: FOSCARNET
     Indication: Eye infection toxoplasmal
     Dosage: UNK
     Route: 065
  4. CLINDAMYCIN [Concomitant]
     Active Substance: CLINDAMYCIN
     Indication: Eye infection toxoplasmal
     Dosage: UNK
  5. CLINDAMYCIN [Concomitant]
     Active Substance: CLINDAMYCIN
     Dosage: UNK
  6. CLINDAMYCIN [Concomitant]
     Active Substance: CLINDAMYCIN
     Dosage: UNK
  7. COTRIMOXAZOLE [Concomitant]
     Active Substance: SULFAMETHOXAZOLE\TRIMETHOPRIM
     Indication: Eye infection toxoplasmal
     Dosage: UNK
     Route: 065

REACTIONS (2)
  - Eye infection toxoplasmal [Recovered/Resolved]
  - Condition aggravated [Recovered/Resolved]
